FAERS Safety Report 22031676 (Version 1)
Quarter: 2023Q1

REPORT INFORMATION
  Report Type: Spontaneous
  Country: CZ (occurrence: CZ)
  Receive Date: 20230224
  Receipt Date: 20230224
  Transmission Date: 20230418
  Serious: Yes (Other)
  Sender: FDA-Public Use
  Company Number: None

PATIENT
  Age: 58 Year
  Sex: Male
  Weight: 113 kg

DRUGS (14)
  1. OPDIVO [Suspect]
     Active Substance: NIVOLUMAB
     Indication: Renal neoplasm
     Dosage: 6 CYCLES MONOTHERAPY 2W
     Route: 042
     Dates: start: 20221031, end: 20230123
  2. OPDIVO [Suspect]
     Active Substance: NIVOLUMAB
     Dosage: 5 CYCLES 3W COMBINED WITH IPILIMUMAB - TOTAL DOSE OF 345 MG
     Route: 042
     Dates: start: 20220802, end: 20221026
  3. Diozen [Concomitant]
     Indication: Product used for unknown indication
  4. TELMISARTAN [Concomitant]
     Active Substance: TELMISARTAN
     Indication: Product used for unknown indication
     Dosage: 1-0-0
  5. SOLIFENACIN\TAMSULOSIN [Concomitant]
     Active Substance: SOLIFENACIN\TAMSULOSIN
     Indication: Product used for unknown indication
     Dosage: 0-0-1
     Dates: start: 202211, end: 20230131
  6. Marumax [Concomitant]
     Indication: Product used for unknown indication
     Dosage: 1-0-0
     Dates: start: 20230201
  7. MIRABEGRON [Concomitant]
     Active Substance: MIRABEGRON
     Indication: Product used for unknown indication
     Dosage: 0-0-1
     Dates: start: 202211, end: 20230131
  8. METFORMIN HYDROCHLORIDE [Concomitant]
     Active Substance: METFORMIN HYDROCHLORIDE
     Indication: Product used for unknown indication
  9. TAMSULOSIN HYDROCHLORIDE [Concomitant]
     Active Substance: TAMSULOSIN HYDROCHLORIDE
     Indication: Product used for unknown indication
     Dosage: 1-0-0
     Dates: end: 202210
  10. ALLOPURINOL [Concomitant]
     Active Substance: ALLOPURINOL
     Indication: Product used for unknown indication
     Dosage: 0-1-0
  11. NEBIVOLOL [Concomitant]
     Active Substance: NEBIVOLOL
     Dosage: 1/2-0-0
  12. ZABCARE [Concomitant]
     Indication: Product used for unknown indication
     Dosage: 0-0-1
     Dates: end: 202210
  13. ATORVASTATIN CALCIUM [Concomitant]
     Active Substance: ATORVASTATIN CALCIUM
     Indication: Product used for unknown indication
     Dosage: 0-1-0
  14. FAKTU [Concomitant]
     Indication: Product used for unknown indication

REACTIONS (4)
  - Urinary retention [Not Recovered/Not Resolved]
  - Thyroiditis [Not Recovered/Not Resolved]
  - Prostatomegaly [Not Recovered/Not Resolved]
  - Hypothyroidism [Not Recovered/Not Resolved]

NARRATIVE: CASE EVENT DATE: 20230101
